FAERS Safety Report 6160839-1 (Version None)
Quarter: 2009Q2

REPORT INFORMATION
  Report Type: 
  Country: None (occurrence: None)
  Receive Date: 20090420
  Receipt Date: 20090409
  Transmission Date: 20091009
  Serious: Yes (Hospitalization)
  Sender: FDA-Public Use
  Company Number: FR-ROCHE-616822

PATIENT
  Sex: Female
  Weight: 63.5 kg

DRUGS (6)
  1. NAPROSYN [Suspect]
     Indication: RHEUMATOID ARTHRITIS
     Route: 048
  2. MABTHERA [Interacting]
     Indication: RHEUMATOID ARTHRITIS
     Route: 042
     Dates: start: 20090216, end: 20090216
  3. MABTHERA [Interacting]
     Dosage: FORM: INJECTABLE SOLUTION, DRUG: MABTHERA POLYARTHRITIS.
     Route: 042
     Dates: start: 20090217
  4. SOLU-MEDROL [Interacting]
     Indication: RHEUMATOID ARTHRITIS
     Route: 042
     Dates: start: 20090216, end: 20090216
  5. ACETAMINOPHEN AND CODEINE PHOSPHATE [Concomitant]
     Indication: RHEUMATOID ARTHRITIS
     Route: 048
  6. CORTANCYL [Concomitant]
     Indication: RHEUMATOID ARTHRITIS
     Route: 048

REACTIONS (2)
  - DRUG INTERACTION [None]
  - GASTROINTESTINAL PERFORATION [None]
